FAERS Safety Report 12273400 (Version 1)
Quarter: 2016Q2

REPORT INFORMATION
  Report Type: Spontaneous
  Country: ZA (occurrence: ZA)
  Receive Date: 20160415
  Receipt Date: 20160415
  Transmission Date: 20160815
  Serious: Yes (Hospitalization)
  Sender: FDA-Public Use
  Company Number: ZA-SYMPLMED PHARMACEUTICALS-2016SYMPLMED000190

PATIENT

DRUGS (2)
  1. VECTORYL [Suspect]
     Active Substance: PERINDOPRIL ERBUMINE
     Indication: HYPERTENSION
     Dosage: 8 MG, QD
     Route: 048
     Dates: start: 20160306, end: 20160306
  2. VECTORYL [Suspect]
     Active Substance: PERINDOPRIL ERBUMINE
     Dosage: 8 MG, BID
     Route: 048
     Dates: start: 20160307

REACTIONS (6)
  - Seizure [Recovering/Resolving]
  - Cerebral haemorrhage [Recovering/Resolving]
  - Dizziness [Recovering/Resolving]
  - Dysarthria [Recovering/Resolving]
  - Abasia [Recovering/Resolving]
  - Malaise [Recovering/Resolving]

NARRATIVE: CASE EVENT DATE: 20160306
